FAERS Safety Report 6235872-1 (Version None)
Quarter: 2009Q2

REPORT INFORMATION
  Report Type: 
  Country: None (occurrence: None)
  Receive Date: 20090619
  Receipt Date: 20090615
  Transmission Date: 20091009
  Serious: Yes (Hospitalization)
  Sender: FDA-Public Use
  Company Number: DE-WYE-G01949908

PATIENT
  Sex: Female
  Weight: 83.5 kg

DRUGS (3)
  1. TREVILOR RETARD [Suspect]
     Indication: DEPRESSION
     Route: 048
     Dates: end: 20080801
  2. TREVILOR RETARD [Suspect]
     Route: 048
     Dates: start: 20080801, end: 20080911
  3. TREVILOR RETARD [Suspect]
     Route: 048
     Dates: start: 20080912

REACTIONS (2)
  - CAESAREAN SECTION [None]
  - DRUG EXPOSURE DURING PREGNANCY [None]
